FAERS Safety Report 16970584 (Version 2)
Quarter: 2019Q4

REPORT INFORMATION
  Report Type: Spontaneous
  Country: US (occurrence: US)
  Receive Date: 20191029
  Receipt Date: 20191030
  Transmission Date: 20200122
  Serious: Yes (Hospitalization)
  Sender: FDA-Public Use
  Company Number: US-PFIZER INC-2019465345

PATIENT
  Age: 69 Year
  Sex: Female

DRUGS (1)
  1. METHOTREXATE SODIUM. [Suspect]
     Active Substance: METHOTREXATE SODIUM
     Dosage: 0.8 ML, WEEKLY
     Route: 058

REACTIONS (9)
  - Pruritus [Unknown]
  - Atelectasis [Unknown]
  - Rash [Unknown]
  - Asthma [Unknown]
  - Treatment failure [Unknown]
  - Condition aggravated [Unknown]
  - Bronchitis [Unknown]
  - Arthropathy [Unknown]
  - Toxicity to various agents [Unknown]
